FAERS Safety Report 5333058-6 (Version None)
Quarter: 2007Q1

REPORT INFORMATION
  Report Type: 
  Country: None (occurrence: None)
  Receive Date: 20070306
  Receipt Date: 20060314
  Transmission Date: 20070707
  Serious: Yes (Other)
  Sender: FDA-Public Use
  Company Number: A03200601401

PATIENT
  Age: 63 Year
  Sex: Female
  Weight: 83.9 kg

DRUGS (6)
  1. PLAVIX [Suspect]
     Indication: CEREBROVASCULAR ACCIDENT
     Dosage: 75 MG QD - ORAL
     Route: 048
     Dates: start: 20060130
  2. INSULIN [Concomitant]
  3. LISINOPRIL [Concomitant]
  4. ATENOLOL [Concomitant]
  5. PROPOXYPHENE NAPSYLATE AND ACETAMINOPHEN [Concomitant]
  6. BUMETANIDE [Concomitant]

REACTIONS (2)
  - ABDOMINAL PAIN LOWER [None]
  - HAEMORRHAGE URINARY TRACT [None]
